FAERS Safety Report 8685396 (Version 3)
Quarter: 2012Q4

REPORT INFORMATION
  Report Type: 
  Country: US (occurrence: US)
  Receive Date: 20120726
  Receipt Date: 20120920
  Transmission Date: 20130627
  Serious: Yes (Other)
  Sender: FDA-Public Use
  Company Number: US-PFIZER INC-2012176885

PATIENT
  Age: 59 Year
  Sex: Male
  Weight: 77.1 kg

DRUGS (3)
  1. LATANOPROST [Suspect]
     Indication: GLAUCOMA
     Dosage: one drop in both eyes, 1x/day
     Route: 047
     Dates: start: 201205, end: 20120606
  2. LATANOPROST [Suspect]
     Dosage: UNK
  3. TIMOLOL [Concomitant]
     Dosage: UNK

REACTIONS (3)
  - Intraocular pressure increased [Recovered/Resolved]
  - Eye disorder [Unknown]
  - Drug ineffective [Unknown]
